FAERS Safety Report 6710036-3 (Version None)
Quarter: 2010Q2

REPORT INFORMATION
  Report Type: 
  Country: None (occurrence: None)
  Receive Date: 20100504
  Receipt Date: 20100422
  Transmission Date: 20101027
  Serious: Yes (Hospitalization)
  Sender: FDA-Public Use
  Company Number: JP-PFIZER INC-2010054400

PATIENT
  Age: 74 Year
  Sex: Male

DRUGS (5)
  1. LIPITOR [Suspect]
     Indication: HYPERCHOLESTEROLAEMIA
     Dosage: 5 MG, DAILY
     Route: 048
     Dates: start: 20040415
  2. ASPIRIN [Concomitant]
     Dosage: UNK
     Route: 048
  3. FAMOTIDINE [Concomitant]
     Dosage: UNK
  4. PRIMPERAN TAB [Concomitant]
     Dosage: UNK
     Route: 048
  5. CONSTAN [Concomitant]
     Dosage: UNK
     Route: 048

REACTIONS (2)
  - INTERSTITIAL LUNG DISEASE [None]
  - NASOPHARYNGITIS [None]
